FAERS Safety Report 4325790-8 (Version None)
Quarter: 2004Q1

REPORT INFORMATION
  Report Type: 
  Country: None (occurrence: None)
  Receive Date: 20040323
  Receipt Date: 20040305
  Transmission Date: 20041129
  Serious: Yes (Life-Threatening, Hospitalization)
  Sender: FDA-Public Use
  Company Number: DSA_24089_2004

PATIENT
  Age: 42 Year
  Sex: Male

DRUGS (3)
  1. DILZEM (LONG-ACTING) [Suspect]
     Indication: SUPRAVENTRICULAR TACHYCARDIA
  2. NIFEDIPINE [Suspect]
     Indication: SUPRAVENTRICULAR TACHYCARDIA
  3. VERAPAMIL [Suspect]
     Indication: SUPRAVENTRICULAR TACHYCARDIA
     Dosage: A FEW YEARS

REACTIONS (20)
  - ASTHENIA [None]
  - BLOOD CREATINE PHOSPHOKINASE INCREASED [None]
  - BLOOD PRESSURE DIASTOLIC DECREASED [None]
  - BRADYCARDIA [None]
  - BUNDLE BRANCH BLOCK [None]
  - CARDIAC VENTRICULOGRAM LEFT ABNORMAL [None]
  - CONFUSIONAL STATE [None]
  - DIZZINESS [None]
  - DYSPNOEA [None]
  - HYPERHIDROSIS [None]
  - HYPOTENSION [None]
  - HYPOXIA [None]
  - METABOLIC ACIDOSIS [None]
  - MYOCARDIAL INFARCTION [None]
  - OVERDOSE [None]
  - PALLOR [None]
  - PALPITATIONS [None]
  - PULMONARY ARTERIAL WEDGE PRESSURE INCREASED [None]
  - PULMONARY OEDEMA [None]
  - TROPONIN T INCREASED [None]
